FAERS Safety Report 9145987 (Version 1)
Quarter: 2013Q1

REPORT INFORMATION
  Report Type: Spontaneous
  Country: US (occurrence: None)
  Receive Date: 20130131
  Receipt Date: 20130131
  Transmission Date: 20140127
  Serious: Yes (Death)
  Sender: FDA-Public Use
  Company Number: IMP_06232_2013

PATIENT
  Age: 31 Year
  Sex: Female

DRUGS (7)
  1. LORATADINE [Suspect]
     Indication: PRODUCT USED FOR UNKNOWN INDICATION
     Dosage: (DF  ORAL)?(UNKNOWN UNTIL NOT CONTINUING)
     Route: 048
  2. CYCLOBENZAPRINE [Suspect]
     Dosage: (DF  ORAL)?(UNKNOWN UNTIL NOT CONTINUING)
     Route: 048
  3. QUETIAPINE [Suspect]
     Dosage: (DF  ORAL)?(UNKNOWN UNTIL NOT CONTINUING)
     Route: 048
  4. ACETAMINOPHRN\BUTALBITAL\CAFFEINE\CODEINE PHOSPHATE. [Suspect]
     Dosage: (DF  ORAL)?(UNKNOWN UNTIL NOT CONTINUING)
     Route: 048
  5. ACETAMINOPHEN  W / HYDROCODONE [Suspect]
     Dosage: (DF  ORAL)?(UNKNOWN UNTIL NOT CONTINUING)
     Route: 048
  6. TEMAZEPAM [Suspect]
     Dosage: (DF  ORAL)?(UNKNOWN UNTIL NOT CONTNUING)
     Route: 048
  7. ACETAMINOPHEN W / OXYCODONE (NOT SPECIFIED) [Suspect]
     Dosage: (DF  ORAL)?(UNKNOWN UNTIL NOT CONTINUING)
     Route: 048

REACTIONS (1)
  - Completed suicide [None]
